FAERS Safety Report 18786852 (Version 1)
Quarter: 2021Q1

REPORT INFORMATION
  Report Type: Spontaneous
  Country: US (occurrence: US)
  Receive Date: 20210125
  Receipt Date: 20210125
  Transmission Date: 20210419
  Serious: No
  Sender: FDA-Public Use
  Company Number: US-ROCHE-2626772

PATIENT
  Sex: Female

DRUGS (2)
  1. TECFIDERA [Suspect]
     Active Substance: DIMETHYL FUMARATE
     Indication: MULTIPLE SCLEROSIS
     Route: 065
     Dates: start: 20130508, end: 20130607
  2. RITUXAN [Suspect]
     Active Substance: RITUXIMAB
     Indication: BREAST CANCER
     Route: 065

REACTIONS (9)
  - Upper respiratory tract infection [Recovered/Resolved]
  - Dizziness [Recovered/Resolved]
  - Sinusitis [Recovered/Resolved]
  - Infection [Recovered/Resolved]
  - Headache [Recovered/Resolved]
  - Adverse drug reaction [Recovered/Resolved]
  - Pain [Recovered/Resolved]
  - Influenza like illness [Recovered/Resolved]
  - Nausea [Recovered/Resolved]
